FAERS Safety Report 23182596 (Version 3)
Quarter: 2023Q4

REPORT INFORMATION
  Report Type: Spontaneous
  Country: US (occurrence: US)
  Receive Date: 20231114
  Receipt Date: 20231120
  Transmission Date: 20240109
  Serious: Yes (Death, Other)
  Sender: FDA-Public Use
  Company Number: US-PFIZER INC-PV202300186385

PATIENT
  Age: 85 Year
  Sex: Female

DRUGS (1)
  1. BRAFTOVI [Suspect]
     Active Substance: ENCORAFENIB
     Dosage: 300 MG, DAILY (TAKE 4 CAPSULES)
     Route: 048

REACTIONS (1)
  - Death [Fatal]
